FAERS Safety Report 23788244 (Version 1)
Quarter: 2024Q2

REPORT INFORMATION
  Report Type: Spontaneous
  Country: RO (occurrence: RO)
  Receive Date: 20240426
  Receipt Date: 20240426
  Transmission Date: 20240716
  Serious: Yes (Other)
  Sender: FDA-Public Use
  Company Number: RO-ROCHE-3548280

PATIENT
  Age: 20 Year
  Sex: Female

DRUGS (18)
  1. DIAZEPAM [Suspect]
     Active Substance: DIAZEPAM
     Indication: Suicide attempt
     Route: 065
  2. QUETIAPINE [Suspect]
     Active Substance: QUETIAPINE
     Indication: Suicide attempt
     Route: 065
  3. CLONAZEPAM [Suspect]
     Active Substance: CLONAZEPAM
     Indication: Psychotic symptom
     Dosage: 2MG (1/2?TABLET/DAY)
     Route: 048
  4. CLONAZEPAM [Suspect]
     Active Substance: CLONAZEPAM
     Route: 048
  5. VALPROIC ACID [Suspect]
     Active Substance: VALPROIC ACID
     Indication: Psychotic symptom
     Dosage: (3 TABLETS/DAY)
     Route: 048
  6. VALPROIC ACID [Suspect]
     Active Substance: VALPROIC ACID
     Dosage: GRADUALLY REACHING
     Route: 048
  7. VALPROIC ACID [Suspect]
     Active Substance: VALPROIC ACID
     Dosage: FOUR TABLETS/DAY
     Route: 048
  8. TRIHEXYPHENIDYL [Suspect]
     Active Substance: TRIHEXYPHENIDYL
     Indication: Psychotic symptom
     Route: 048
  9. TRAZODONE [Suspect]
     Active Substance: TRAZODONE HYDROCHLORIDE
     Indication: Psychotic symptom
     Route: 048
  10. RISPERIDONE [Suspect]
     Active Substance: RISPERIDONE
     Indication: Psychotic symptom
     Route: 048
  11. CLOMIPRAMINE [Suspect]
     Active Substance: CLOMIPRAMINE
     Indication: Depression
     Route: 048
  12. CLOMIPRAMINE [Suspect]
     Active Substance: CLOMIPRAMINE
     Dosage: 3 TABLETS/DAY
     Route: 048
  13. VORTIOXETINE [Concomitant]
     Active Substance: VORTIOXETINE
     Indication: Product used for unknown indication
  14. VORTIOXETINE [Concomitant]
     Active Substance: VORTIOXETINE
  15. CLOZAPINE [Concomitant]
     Active Substance: CLOZAPINE
     Indication: Product used for unknown indication
  16. CARIPRAZINE [Concomitant]
     Active Substance: CARIPRAZINE
     Indication: Product used for unknown indication
     Dosage: STRENGTH:1.5MG
  17. CARIPRAZINE [Concomitant]
     Active Substance: CARIPRAZINE
     Dosage: STRENGTH:6MG
  18. OLANZAPINE [Concomitant]
     Active Substance: OLANZAPINE
     Indication: Product used for unknown indication

REACTIONS (3)
  - Suicide attempt [Unknown]
  - Toxicity to various agents [Unknown]
  - Treatment noncompliance [Unknown]
